FAERS Safety Report 6611651-8 (Version None)
Quarter: 2010Q1

REPORT INFORMATION
  Report Type: 
  Country: None (occurrence: None)
  Receive Date: 20100303
  Receipt Date: 20100222
  Transmission Date: 20100710
  Serious: Yes (Other)
  Sender: FDA-Public Use
  Company Number: FR-JNJFOC-20100210613

PATIENT
  Age: 35 Year
  Sex: Female

DRUGS (2)
  1. EPITOMAX [Suspect]
     Indication: MIGRAINE
     Route: 048
  2. EPITOMAX [Suspect]
     Route: 048

REACTIONS (3)
  - DECREASED APPETITE [None]
  - HYPOMANIA [None]
  - INSOMNIA [None]
